FAERS Safety Report 19457373 (Version 1)
Quarter: 2021Q2

REPORT INFORMATION
  Report Type: Spontaneous
  Country: US (occurrence: US)
  Receive Date: 20210624
  Receipt Date: 20210624
  Transmission Date: 20210717
  Serious: Yes (Other)
  Sender: FDA-Public Use
  Company Number: US-GLAXOSMITHKLINE-US2021GSK134731

PATIENT
  Sex: Female

DRUGS (4)
  1. ZANTAC [Suspect]
     Active Substance: RANITIDINE HYDROCHLORIDE
     Dosage: 50MG
     Route: 065
     Dates: start: 201301, end: 201401
  2. RANITIDINE. [Suspect]
     Active Substance: RANITIDINE
     Dosage: 50MG
     Route: 065
     Dates: start: 201301, end: 201412
  3. RANITIDINE. [Suspect]
     Active Substance: RANITIDINE
     Dosage: 50MG
     Route: 065
     Dates: start: 201301, end: 201412
  4. ZANTAC [Suspect]
     Active Substance: RANITIDINE HYDROCHLORIDE
     Dosage: 50MG
     Route: 065
     Dates: start: 201301, end: 201401

REACTIONS (1)
  - Colorectal cancer [Unknown]
